FAERS Safety Report 25817603 (Version 1)
Quarter: 2025Q3

REPORT INFORMATION
  Report Type: Report from Study
  Country: BR (occurrence: BR)
  Receive Date: 20250918
  Receipt Date: 20250918
  Transmission Date: 20251020
  Serious: Yes (Other)
  Sender: JOHNSON AND JOHNSON
  Company Number: BR-JNJFOC-20250917970

PATIENT
  Age: 35 Year
  Sex: Female
  Weight: 40 kg

DRUGS (2)
  1. INFLIXIMAB [Suspect]
     Active Substance: INFLIXIMAB
     Indication: Crohn^s disease
     Route: 041
     Dates: start: 201511
  2. AZATHIOPRINE [Suspect]
     Active Substance: AZATHIOPRINE
     Indication: Crohn^s disease

REACTIONS (4)
  - Intestinal stenosis [Unknown]
  - Intestinal perforation [Unknown]
  - Crohn^s disease [Unknown]
  - Drug ineffective [Unknown]
